FAERS Safety Report 19281641 (Version 1)
Quarter: 2021Q2

REPORT INFORMATION
  Report Type: Report from Study
  Country: IT (occurrence: IT)
  Receive Date: 20210521
  Receipt Date: 20210521
  Transmission Date: 20210717
  Serious: Yes (Other)
  Sender: FDA-Public Use
  Company Number: IT-TEVA-2021-IT-1912721

PATIENT
  Age: 72 Year
  Sex: Female
  Weight: 65 kg

DRUGS (2)
  1. CARBOPLATINO TEVA 10 MG/ML [Suspect]
     Active Substance: CARBOPLATIN
     Indication: ENDOMETRIAL NEOPLASM
     Dosage: 420 MG, FORM STRENGTH: 10 MG/ML
     Route: 042
     Dates: start: 20210315, end: 20210315
  2. PACLITAXEL KABI 6 MG/ML CONCENTRATO PER SOLUZIONE PER INFUSIONE [Suspect]
     Active Substance: PACLITAXEL
     Indication: ENDOMETRIAL NEOPLASM
     Dosage: 280 MG, FORM STRENGTH: 6 MG/ML
     Route: 042
     Dates: start: 20210315, end: 20210415

REACTIONS (1)
  - Febrile neutropenia [Recovered/Resolved]

NARRATIVE: CASE EVENT DATE: 20210324
